FAERS Safety Report 8775153 (Version 1)
Quarter: 2012Q4

REPORT INFORMATION
  Report Type: 
  Country: US (occurrence: US)
  Receive Date: 20120907
  Receipt Date: 20120907
  Transmission Date: 20130627
  Serious: Yes (Death)
  Sender: FDA-Public Use
  Company Number: US-ASTELLAS-2012US007613

PATIENT
  Age: 45 Year
  Sex: Male

DRUGS (1)
  1. PROGRAF [Suspect]
     Indication: RENAL TRANSPLANT
     Dosage: 2 mg, bid
     Route: 048
     Dates: start: 20070615, end: 20120802

REACTIONS (2)
  - Necrosis [Fatal]
  - Infection [Fatal]
